FAERS Safety Report 9520746 (Version 2)
Quarter: 2014Q2

REPORT INFORMATION
  Report Type: Spontaneous
  Country: IT (occurrence: None)
  Receive Date: 20130911
  Receipt Date: 20140425
  Transmission Date: 20141212
  Serious: Yes (Hospitalization, Other)
  Sender: FDA-Public Use
  Company Number: 2013AP007882

PATIENT
  Age: 79 Year
  Sex: Female

DRUGS (7)
  1. AZITHROMYCIN (AZITHROMYCIN) [Suspect]
     Indication: BRONCHOPNEUMONIA
     Route: 048
     Dates: start: 20130520, end: 20130523
  2. ROSUVASTATIN CALCIUM [Suspect]
     Indication: HYPERCHOLESTEROLAEMIA
     Route: 048
     Dates: start: 20130520, end: 20130523
  3. LASIX [Concomitant]
  4. TRIATEC [Concomitant]
  5. SPIRIVA [Concomitant]
  6. SALMETEROL XINAFOATE (SALMETEROL XINAFOATE) [Concomitant]
  7. TIKLID (TICLOPIDINE HYDROCHLORIDE) [Concomitant]

REACTIONS (2)
  - Cholestasis [None]
  - Transaminases increased [None]
